FAERS Safety Report 4867568-2 (Version None)
Quarter: 2005Q4

REPORT INFORMATION
  Report Type: 
  Country: None (occurrence: None)
  Receive Date: 20051222
  Receipt Date: 20051213
  Transmission Date: 20060501
  Serious: Yes (Hospitalization, Other)
  Sender: FDA-Public Use
  Company Number: HQWYE467416JUNE04

PATIENT
  Age: 8 Year
  Sex: Female
  Weight: 23 kg

DRUGS (8)
  1. RAPAMUNE [Suspect]
     Indication: PROPHYLAXIS AGAINST TRANSPLANT REJECTION
     Dosage: 4 MG 2X PER 1 DAY, ORAL
     Route: 048
     Dates: start: 20020307, end: 20040830
  2. ENALARPIL (ENALAPRIL) [Concomitant]
  3. PROGRAF [Concomitant]
  4. PREDNISONE [Concomitant]
  5. LIPITOR [Concomitant]
  6. ZANTAC [Concomitant]
  7. NORVASC [Concomitant]
  8. INSULIN [Concomitant]

REACTIONS (3)
  - BLOOD CREATININE INCREASED [None]
  - CLOSTRIDIUM COLITIS [None]
  - DEHYDRATION [None]
